FAERS Safety Report 16242839 (Version 3)
Quarter: 2022Q2

REPORT INFORMATION
  Report Type: Spontaneous
  Country: FR (occurrence: FR)
  Receive Date: 20190426
  Receipt Date: 20220624
  Transmission Date: 20220721
  Serious: Yes (Hospitalization, Other)
  Sender: FDA-Public Use
  Company Number: None

PATIENT
  Age: 17 Year
  Sex: Male
  Weight: 82 kg

DRUGS (16)
  1. PREDNISOLONE [Suspect]
     Active Substance: PREDNISOLONE
     Indication: Product used for unknown indication
     Dosage: 200 MILLIGRAM, TOTAL
     Route: 048
     Dates: start: 20180701, end: 20180701
  2. ACETAMINOPHEN [Suspect]
     Active Substance: ACETAMINOPHEN
     Indication: Product used for unknown indication
     Dosage: 79 GRAM, TOTAL
     Route: 048
     Dates: start: 20180701, end: 20180701
  3. AZITHROMYCIN [Suspect]
     Active Substance: AZITHROMYCIN
     Indication: Product used for unknown indication
     Dosage: 1500 MILLIGRAM, TOTAL
     Route: 048
     Dates: start: 20180701, end: 20180701
  4. ESCITALOPRAM [Suspect]
     Active Substance: ESCITALOPRAM OXALATE
     Indication: Product used for unknown indication
     Dosage: 140 MILLIGRAM, QD
     Route: 048
     Dates: start: 20180701, end: 20180701
  5. ESCITALOPRAM [Suspect]
     Active Substance: ESCITALOPRAM OXALATE
     Dosage: 10 MG, QD (OVERDOSE: 140 MG, 1 DAY)
     Route: 048
     Dates: start: 20180701, end: 20180701
  6. CEFPODOXIME [Suspect]
     Active Substance: CEFPODOXIME
     Indication: Product used for unknown indication
     Dosage: 2000 MILLIGRAM, TOTAL
     Route: 048
     Dates: start: 20180701, end: 20180701
  7. TRIMEBUTINE [Suspect]
     Active Substance: TRIMEBUTINE
     Indication: Product used for unknown indication
     Dosage: 14000 MILLIGRAM, TOTAL
     Route: 048
     Dates: start: 20180701, end: 20180701
  8. AMOXICILLIN\CLAVULANIC ACID [Suspect]
     Active Substance: AMOXICILLIN\CLAVULANIC ACID
     Indication: Product used for unknown indication
     Dosage: 6 GRAM, QD
     Route: 048
     Dates: start: 20180701, end: 20180701
  9. LOPERAMIDE [Suspect]
     Active Substance: LOPERAMIDE
     Indication: Product used for unknown indication
     Dosage: 30 MILLIGRAM, TOTAL
     Route: 048
     Dates: start: 20180701, end: 20180701
  10. LOPERAMIDE OXIDE [Suspect]
     Active Substance: LOPERAMIDE OXIDE
     Indication: Product used for unknown indication
     Dosage: 30 MILLIGRAM, TOTAL
     Route: 048
     Dates: start: 20180701, end: 20180701
  11. OXAZEPAM [Suspect]
     Active Substance: OXAZEPAM
     Indication: Product used for unknown indication
     Dosage: 310 MILLIGRAM, TOTAL
     Route: 048
     Dates: start: 20180701, end: 20180701
  12. BILASTINE [Suspect]
     Active Substance: BILASTINE
     Indication: Product used for unknown indication
     Dosage: 120 MILLIGRAM, TOTAL
     Route: 048
     Dates: start: 20180701, end: 20180701
  13. AUGMENTIN [Suspect]
     Active Substance: AMOXICILLIN\CLAVULANATE POTASSIUM
     Indication: Product used for unknown indication
     Dosage: 6 GRAM, QD
     Route: 048
     Dates: start: 20180701, end: 20180701
  14. OXAZEPAM [Suspect]
     Active Substance: OXAZEPAM
     Indication: Product used for unknown indication
     Dosage: 310 MILLIGRAM, TOTAL
     Route: 048
     Dates: start: 20180701, end: 20180701
  15. BILASTINE [Suspect]
     Active Substance: BILASTINE
     Indication: Product used for unknown indication
     Dosage: 120 MILLIGRAM, TOTAL
     Route: 048
     Dates: start: 20180701, end: 20180701
  16. DIETARY SUPPLEMENT\HERBALS [Suspect]
     Active Substance: DIETARY SUPPLEMENT\HERBALS
     Indication: Product used for unknown indication
     Dosage: UNK
     Route: 048
     Dates: start: 20180701, end: 20180701

REACTIONS (9)
  - Mydriasis [Recovered/Resolved]
  - Vomiting [Recovered/Resolved]
  - Malaise [Recovered/Resolved]
  - Somnolence [Recovered/Resolved]
  - Suicide attempt [Recovered/Resolved]
  - Intentional overdose [Recovered/Resolved]
  - Toxicity to various agents [Recovered/Resolved]
  - Product use issue [Unknown]
  - Product use in unapproved indication [Unknown]

NARRATIVE: CASE EVENT DATE: 20180701
